FAERS Safety Report 6721674-6 (Version None)
Quarter: 2010Q2

REPORT INFORMATION
  Report Type: 
  Country: None (occurrence: None)
  Receive Date: 20100512
  Receipt Date: 20100510
  Transmission Date: 20101027
  Serious: Yes (Death)
  Sender: FDA-Public Use
  Company Number: AU-JNJFOC-20100502999

PATIENT
  Age: 39 Year
  Sex: Female

DRUGS (6)
  1. RISPERDAL [Suspect]
     Indication: DRUG USE FOR UNKNOWN INDICATION
     Route: 048
  2. ENDEP [Suspect]
     Indication: DRUG USE FOR UNKNOWN INDICATION
     Route: 048
  3. SEROQUEL [Suspect]
     Indication: DRUG USE FOR UNKNOWN INDICATION
     Dosage: 1 DOSE UNSPECIFIED
     Route: 048
  4. LASIX [Concomitant]
     Route: 065
  5. NEXIUM [Concomitant]
     Route: 065
  6. SPIRONOLACTONE [Concomitant]
     Route: 048

REACTIONS (2)
  - CONVULSION [None]
  - DEATH [None]
